FAERS Safety Report 8396057-6 (Version None)
Quarter: 2012Q2

REPORT INFORMATION
  Report Type: 
  Country: None (occurrence: None)
  Receive Date: 20120530
  Receipt Date: 20120523
  Transmission Date: 20120825
  Serious: Yes (Other)
  Sender: FDA-Public Use
  Company Number: US-ROCHE-1071178

PATIENT
  Sex: Male

DRUGS (1)
  1. RANIBIZUMAB [Suspect]
     Indication: PRESUMED OCULAR HISTOPLASMOSIS SYNDROME
     Route: 050
     Dates: start: 20110520

REACTIONS (1)
  - SCOTOMA [None]
